FAERS Safety Report 7336091-8 (Version None)
Quarter: 2011Q1

REPORT INFORMATION
  Report Type: 
  Country: None (occurrence: None)
  Receive Date: 20110307
  Receipt Date: 20110224
  Transmission Date: 20110831
  Serious: Yes (Hospitalization, Disabling, Other)
  Sender: FDA-Public Use
  Company Number: US-ASTRAZENECA-2010SE18549

PATIENT
  Age: 89 Year
  Sex: Female

DRUGS (9)
  1. TOPROL-XL [Suspect]
     Indication: CARDIAC FAILURE CONGESTIVE
     Route: 048
  2. THYROXIN [Concomitant]
  3. COUMADIN [Concomitant]
  4. LASIX [Concomitant]
  5. LISINOPRIL [Concomitant]
  6. ZESTRIL [Suspect]
     Route: 048
  7. TOPROL-XL [Suspect]
     Indication: ATRIAL FIBRILLATION
     Route: 048
  8. TAMOXIFEN CITRATE [Suspect]
     Route: 048
  9. ASPIRIN [Concomitant]

REACTIONS (26)
  - HYPOAESTHESIA [None]
  - CERVICAL SPINAL STENOSIS [None]
  - PLEURAL EFFUSION [None]
  - BLINDNESS UNILATERAL [None]
  - HEART RATE DECREASED [None]
  - BLADDER DYSFUNCTION [None]
  - PROSTHESIS USER [None]
  - ANGINA PECTORIS [None]
  - EYE INFECTION [None]
  - CATARACT [None]
  - CARDIAC FAILURE [None]
  - HIP SURGERY [None]
  - VISUAL ACUITY REDUCED [None]
  - ACCIDENT AT HOME [None]
  - INTERVERTEBRAL DISC PROTRUSION [None]
  - INTESTINAL FUNCTIONAL DISORDER [None]
  - PAIN [None]
  - PAIN IN EXTREMITY [None]
  - DIARRHOEA [None]
  - EYELID DISORDER [None]
  - MASTECTOMY [None]
  - BREAST CANCER [None]
  - HEARING IMPAIRED [None]
  - DEVICE DISLOCATION [None]
  - LYMPHOMA [None]
  - ABASIA [None]
